FAERS Safety Report 6142905-X (Version None)
Quarter: 2009Q2

REPORT INFORMATION
  Report Type: 
  Country: None (occurrence: None)
  Receive Date: 20090403
  Receipt Date: 20090324
  Transmission Date: 20091009
  Serious: Yes (Hospitalization)
  Sender: FDA-Public Use
  Company Number: US-JNJFOC-20090306791

PATIENT
  Age: 45 Year
  Sex: Female

DRUGS (18)
  1. PREZISTA [Suspect]
     Indication: HIV INFECTION
     Route: 048
  2. ETRAVIRINE [Suspect]
  3. ETRAVIRINE [Suspect]
     Indication: HIV INFECTION
  4. RALTEGRAVIR [Suspect]
     Indication: HIV INFECTION
     Route: 065
  5. RITONAVIR [Suspect]
     Indication: HIV INFECTION
     Route: 065
  6. MARAVIROC [Suspect]
     Indication: HIV INFECTION
     Route: 065
  7. METHADONE [Interacting]
     Indication: DRUG USE FOR UNKNOWN INDICATION
  8. PERCOCET [Interacting]
     Indication: DRUG USE FOR UNKNOWN INDICATION
  9. ABILIFY [Concomitant]
  10. BACTRIM [Concomitant]
  11. ATIVAN [Concomitant]
  12. PHENERGAN [Concomitant]
  13. LITHIUM CARBONATE [Concomitant]
  14. FLEXERIL [Concomitant]
  15. SODIUM PHOSPHATES [Concomitant]
  16. DULCOLAX [Concomitant]
  17. COLACE [Concomitant]
  18. ANUSOL [Concomitant]

REACTIONS (6)
  - DRUG INTERACTION [None]
  - ELECTROCARDIOGRAM QT PROLONGED [None]
  - MENINGITIS [None]
  - MENTAL STATUS CHANGES [None]
  - SEDATION [None]
  - URINARY TRACT INFECTION [None]
